FAERS Safety Report 4383215-0 (Version None)
Quarter: 2004Q2

REPORT INFORMATION
  Report Type: 
  Country: None (occurrence: None)
  Receive Date: 20040623
  Receipt Date: 20040414
  Transmission Date: 20050107
  Serious: Yes (Life-Threatening)
  Sender: FDA-Public Use
  Company Number: 200411393JP

PATIENT
  Age: 81 Year
  Sex: Female
  Weight: 38 kg

DRUGS (9)
  1. ARAVA [Suspect]
     Indication: RHEUMATOID ARTHRITIS
     Route: 048
     Dates: start: 20031208, end: 20040412
  2. PREDONINE [Concomitant]
     Indication: RHEUMATOID ARTHRITIS
     Route: 048
     Dates: end: 20040412
  3. AMOBAN [Concomitant]
     Indication: INSOMNIA
     Route: 048
     Dates: end: 20040412
  4. HERBESSER [Concomitant]
     Indication: CARDIAC FAILURE
     Route: 048
     Dates: end: 20040412
  5. RIMATIL [Concomitant]
     Indication: RHEUMATOID ARTHRITIS
     Route: 048
     Dates: end: 20040105
  6. INFREE [Concomitant]
     Route: 048
     Dates: end: 20031125
  7. SELBEX [Concomitant]
     Indication: GASTRITIS
     Route: 048
  8. GASTER [Concomitant]
     Route: 048
     Dates: end: 20031125
  9. TAKEPRON [Concomitant]
     Indication: GASTRIC ULCER
     Route: 048
     Dates: start: 20031125

REACTIONS (1)
  - GASTRIC CANCER [None]
